FAERS Safety Report 12971483 (Version 1)
Quarter: 2016Q4

REPORT INFORMATION
  Report Type: Spontaneous
  Country: US (occurrence: US)
  Receive Date: 20161123
  Receipt Date: 20161123
  Transmission Date: 20170207
  Serious: No
  Sender: FDA-Public Use
  Company Number: US-JAZZ-2016-US-020177

PATIENT
  Sex: Female

DRUGS (9)
  1. IBUPROFEN                          /00109205/ [Concomitant]
     Active Substance: IBUPROFEN
  2. CETIRIZINE HCL [Concomitant]
     Active Substance: CETIRIZINE HYDROCHLORIDE
  3. XYREM [Suspect]
     Active Substance: SODIUM OXYBATE
     Indication: NARCOLEPSY
     Dosage: 2.25 G, BID
     Route: 048
     Dates: start: 201610
  4. PROVIGIL [Concomitant]
     Active Substance: MODAFINIL
  5. ALEVE [Concomitant]
     Active Substance: NAPROXEN SODIUM
  6. XYREM [Suspect]
     Active Substance: SODIUM OXYBATE
     Indication: CATAPLEXY
  7. VITAMIN D3 [Concomitant]
     Active Substance: CHOLECALCIFEROL
  8. NASONEX [Concomitant]
     Active Substance: MOMETASONE FUROATE
  9. OPCON-A [Concomitant]
     Active Substance: NAPHAZOLINE HYDROCHLORIDE\PHENIRAMINE MALEATE

REACTIONS (1)
  - Seasonal allergy [Unknown]
